FAERS Safety Report 7230044-6 (Version None)
Quarter: 2011Q1

REPORT INFORMATION
  Report Type: 
  Country: None (occurrence: None)
  Receive Date: 20110118
  Receipt Date: 20110107
  Transmission Date: 20110831
  Serious: Yes (Other)
  Sender: FDA-Public Use
  Company Number: US-BIOGENIDEC-2010BI044885

PATIENT
  Sex: Female

DRUGS (1)
  1. TYSABRI [Suspect]
     Indication: MULTIPLE SCLEROSIS
     Route: 042
     Dates: start: 20100225, end: 20100326

REACTIONS (7)
  - POOR VENOUS ACCESS [None]
  - WEIGHT INCREASED [None]
  - URINARY TRACT INFECTION [None]
  - ASTHMA [None]
  - MULTIPLE SCLEROSIS RELAPSE [None]
  - ANAPHYLACTIC SHOCK [None]
  - DRUG INEFFECTIVE [None]
